FAERS Safety Report 8691224 (Version 2)
Quarter: 2012Q4

REPORT INFORMATION
  Report Type: 
  Country: CA (occurrence: CA)
  Receive Date: 20120730
  Receipt Date: 20120910
  Transmission Date: 20130627
  Serious: Yes (Other)
  Sender: FDA-Public Use
  Company Number: PHHY2012CA006496

PATIENT
  Sex: Female

DRUGS (1)
  1. FEMARA [Suspect]
     Indication: BREAST CANCER
     Dosage: 2.5 mg, daily
     Route: 048
     Dates: start: 201009

REACTIONS (12)
  - Neoplasm [Unknown]
  - Breast infection [Unknown]
  - Mastitis [Unknown]
  - Erythema [Unknown]
  - Depressed mood [Unknown]
  - Gait disturbance [Unknown]
  - Alopecia [Unknown]
  - Weight increased [Unknown]
  - Depression [Unknown]
  - Arthralgia [Unknown]
  - Night sweats [Unknown]
  - Lacrimal disorder [None]
